FAERS Safety Report 9416061 (Version 1)
Quarter: 2013Q3

REPORT INFORMATION
  Report Type: Spontaneous
  Country: US (occurrence: None)
  Receive Date: 20130723
  Receipt Date: 20130723
  Transmission Date: 20140515
  Serious: Yes (Death)
  Sender: FDA-Public Use
  Company Number: None

PATIENT
  Sex: Male

DRUGS (2)
  1. SODIUM CHLORIDE 0.9% [Suspect]
  2. LIBERTY CYCLER [Concomitant]

REACTIONS (1)
  - Death [None]
